FAERS Safety Report 21185303 (Version 1)
Quarter: 2022Q3

REPORT INFORMATION
  Report Type: Spontaneous
  Country: US (occurrence: None)
  Receive Date: 20220808
  Receipt Date: 20220808
  Transmission Date: 20221026
  Serious: Yes (Other)
  Sender: FDA-Public Use
  Company Number: None

PATIENT
  Age: 67 Year
  Sex: Female
  Weight: 45 kg

DRUGS (8)
  1. PROHANCE [Suspect]
     Active Substance: GADOTERIDOL
     Indication: Magnetic resonance imaging
     Dates: start: 20220804, end: 20220804
  2. SIMVASTATIN [Concomitant]
     Active Substance: SIMVASTATIN
  3. LEVOTHYROXINE [Concomitant]
     Active Substance: LEVOTHYROXINE
  4. VITAMIN D3 [Concomitant]
     Active Substance: CHOLECALCIFEROL
  5. VITAMIN B12 [Concomitant]
     Active Substance: CYANOCOBALAMIN
  6. ALLEGRA [Concomitant]
     Active Substance: FEXOFENADINE HYDROCHLORIDE
  7. Vaginal Premarin [Concomitant]
  8. clobetisol [Concomitant]

REACTIONS (5)
  - Oral discomfort [None]
  - Eye irritation [None]
  - Ear discomfort [None]
  - Nasal congestion [None]
  - Mouth breathing [None]

NARRATIVE: CASE EVENT DATE: 20220804
